FAERS Safety Report 7850219-2 (Version None)
Quarter: 2011Q4

REPORT INFORMATION
  Report Type: 
  Country: None (occurrence: None)
  Receive Date: 20111026
  Receipt Date: 20111019
  Transmission Date: 20120403
  Serious: Yes (Other)
  Sender: FDA-Public Use
  Company Number: CA-JNJFOC-20110106344

PATIENT
  Age: 56 Year
  Sex: Female
  Weight: 78.2 kg

DRUGS (1)
  1. GOLIMUMAB [Suspect]
     Indication: POLYARTHRITIS
     Route: 042
     Dates: start: 20101102

REACTIONS (1)
  - INCORRECT ROUTE OF DRUG ADMINISTRATION [None]
